FAERS Safety Report 8204480-5 (Version None)
Quarter: 2012Q1

REPORT INFORMATION
  Report Type: 
  Country: None (occurrence: None)
  Receive Date: 20120313
  Receipt Date: 20120301
  Transmission Date: 20120608
  Serious: Yes (Hospitalization)
  Sender: FDA-Public Use
  Company Number: DE-JNJFOC-20120212823

PATIENT
  Sex: Female

DRUGS (8)
  1. AMITRIPTYLINE HCL [Concomitant]
     Indication: PRODUCT USED FOR UNKNOWN INDICATION
     Route: 048
  2. METOPROLOL SUCCINATE [Concomitant]
     Indication: HYPERTENSION
     Dosage: 95 MG ONE PER DAY
     Route: 065
     Dates: start: 20050101
  3. PANTOPRAZOLE [Concomitant]
     Indication: PRODUCT USED FOR UNKNOWN INDICATION
     Dosage: 2 X 1 FOR 4 WEEKS, CURRENTLY 1 X 1
     Route: 048
  4. PALEXIA RETARD [Suspect]
     Dosage: 300 MG
     Route: 048
  5. CARMEN ACE [Concomitant]
     Indication: HYPERTENSION
     Dosage: 95 MG ONE PER DAY
     Route: 065
     Dates: start: 20100101
  6. PALEXIA RETARD [Suspect]
     Indication: PAIN
     Dosage: 100 MG - 0 - 100 MG (200 MG IN TOTAL)
     Route: 048
     Dates: start: 20120103
  7. PALEXIA RETARD [Suspect]
     Dosage: 300 MG
     Route: 048
     Dates: start: 20110201
  8. LYRICA [Concomitant]
     Indication: PRODUCT USED FOR UNKNOWN INDICATION
     Route: 048

REACTIONS (7)
  - HYPERHIDROSIS [None]
  - WEIGHT DECREASED [None]
  - CONSTIPATION [None]
  - NAUSEA [None]
  - CARDIOVASCULAR DISORDER [None]
  - FEELING ABNORMAL [None]
  - PALLOR [None]
